FAERS Safety Report 8422633-8 (Version None)
Quarter: 2012Q2

REPORT INFORMATION
  Report Type: 
  Country: None (occurrence: None)
  Receive Date: 20120608
  Receipt Date: 20120531
  Transmission Date: 20120825
  Serious: Yes (Death)
  Sender: FDA-Public Use
  Company Number: DE-ROCHE-1039305

PATIENT

DRUGS (1)
  1. MABTHERA [Suspect]
     Indication: B-CELL LYMPHOMA

REACTIONS (1)
  - NEOPLASM MALIGNANT [None]
